FAERS Safety Report 9107364 (Version 5)
Quarter: 2013Q4

REPORT INFORMATION
  Report Type: Spontaneous
  Country: US (occurrence: US)
  Receive Date: 20130221
  Receipt Date: 20131210
  Transmission Date: 20140711
  Serious: Yes (Death, Hospitalization, Other)
  Sender: FDA-Public Use
  Company Number: US-009507513-1302USA009117

PATIENT
  Sex: Female
  Weight: 44.44 kg

DRUGS (4)
  1. FOSAMAX [Suspect]
     Indication: OSTEOPOROSIS
     Dosage: 10 MG, QD
     Route: 048
     Dates: start: 200101, end: 200110
  2. FOSAMAX [Suspect]
     Dosage: 70 MG, QW
     Route: 048
     Dates: start: 200110, end: 200802
  3. ALENDRONATE SODIUM [Suspect]
     Indication: OSTEOPOROSIS
     Dosage: 70 MG, QW
     Route: 048
     Dates: start: 200802, end: 200909
  4. ADVAIR [Concomitant]
     Indication: CHRONIC OBSTRUCTIVE PULMONARY DISEASE
     Dosage: UNK
     Dates: start: 1990, end: 2012

REACTIONS (32)
  - Femur fracture [Unknown]
  - Intramedullary rod insertion [Unknown]
  - Cardiac operation [Unknown]
  - Cerebrovascular accident [Unknown]
  - Respiratory distress [Unknown]
  - Respiratory failure [Fatal]
  - Rib fracture [Fatal]
  - Chronic obstructive pulmonary disease [Fatal]
  - Bronchitis [Unknown]
  - Rib fracture [Unknown]
  - Rib fracture [Unknown]
  - Thoracic vertebral fracture [Unknown]
  - Hypothyroidism [Unknown]
  - Blood cholesterol increased [Unknown]
  - Hypertension [Unknown]
  - Cardiac failure congestive [Unknown]
  - Atrial fibrillation [Unknown]
  - Tendonitis [Unknown]
  - Arteriosclerosis coronary artery [Unknown]
  - Oedema [Unknown]
  - Seborrhoeic keratosis [Unknown]
  - Lesion excision [Unknown]
  - Kyphosis [Unknown]
  - Arthropathy [Unknown]
  - Spinal compression fracture [Unknown]
  - Osteoarthritis [Unknown]
  - Joint injury [Unknown]
  - Osteoarthritis [Unknown]
  - Emphysema [Unknown]
  - Spinal fracture [Unknown]
  - Cardiac myxoma [Unknown]
  - Haematocrit decreased [Unknown]
